FAERS Safety Report 7715489-X (Version None)
Quarter: 2011Q3

REPORT INFORMATION
  Report Type: 
  Country: None (occurrence: None)
  Receive Date: 20110829
  Receipt Date: 20110726
  Transmission Date: 20111222
  Serious: Yes (Hospitalization, Other)
  Sender: FDA-Public Use
  Company Number: US-AMGEN-USASP2011030730

PATIENT
  Weight: 3.18 kg

DRUGS (4)
  1. ENBREL [Suspect]
     Dosage: 50 MG, QWK
     Route: 063
     Dates: start: 20070801, end: 20080701
  2. ENBREL [Suspect]
     Dosage: 50 MG, 2 TIMES/WK
     Route: 064
     Dates: start: 20051101, end: 20061001
  3. ENBREL [Suspect]
     Dosage: 50 MG, QWK
     Dates: start: 20100601
  4. ENBREL [Suspect]
     Dosage: 50 MG, 2 TIMES/WK
     Dates: start: 20050209, end: 20050401

REACTIONS (3)
  - NEONATAL ASPIRATION [None]
  - ASTHMA [None]
  - NASOPHARYNGITIS [None]
